FAERS Safety Report 8904571 (Version 1)
Quarter: 2012Q4

REPORT INFORMATION
  Report Type: 
  Country: CA (occurrence: CA)
  Receive Date: 20121113
  Receipt Date: 20121113
  Transmission Date: 20130627
  Serious: Yes (Death, Hospitalization, Other)
  Sender: FDA-Public Use
  Company Number: PHBS2001CA06623

PATIENT
  Age: 81 Year
  Sex: Male

DRUGS (10)
  1. EXELON [Suspect]
     Indication: DEMENTIA ALZHEIMER^S TYPE
     Dosage: 1.5 mg, BID
     Dates: start: 20010529
  2. EXELON [Suspect]
     Dosage: 4.5 mg, BID
     Route: 048
     Dates: start: 20010626
  3. EXELON [Suspect]
     Dosage: 3 mg, BID
     Route: 048
  4. RISPERDAL [Concomitant]
     Route: 065
  5. SERAX [Concomitant]
     Dosage: 30 mg, UNK
     Route: 065
  6. ZESTRIL [Concomitant]
     Dosage: 10 mg, BID
     Route: 065
  7. COUMADINE [Concomitant]
     Dosage: 3 mg, QD
     Route: 065
  8. ISOPTIN - SLOW RELEASE [Concomitant]
     Dosage: 120 mg, QD
     Route: 065
  9. LANOXIN [Concomitant]
  10. LASIX [Concomitant]
     Dosage: 20 mg, BID
     Route: 065

REACTIONS (13)
  - Cardiac failure [Fatal]
  - Pneumonia [Unknown]
  - Chronic obstructive pulmonary disease [Unknown]
  - Aortic aneurysm [Unknown]
  - Renal failure chronic [Unknown]
  - Cardiac failure congestive [Unknown]
  - Angina pectoris [Recovering/Resolving]
  - Azotaemia [Unknown]
  - Vomiting [Not Recovered/Not Resolved]
  - Chest pain [None]
  - Asthenia [Not Recovered/Not Resolved]
  - Atrial fibrillation [Unknown]
  - Somnolence [Not Recovered/Not Resolved]
